FAERS Safety Report 4579132-3 (Version None)
Quarter: 2005Q1

REPORT INFORMATION
  Report Type: 
  Country: None (occurrence: None)
  Receive Date: 20050121
  Receipt Date: 20040521
  Transmission Date: 20050727
  Serious: Yes (Other)
  Sender: FDA-Public Use
  Company Number: STA-AE-04-MTX-211

PATIENT
  Age: 45 Year
  Sex: Female

DRUGS (11)
  1. METHOTREXATE [Suspect]
     Indication: ARTHRITIS
     Dosage: 10 MG 1X PER 1 WK, ORAL
     Route: 048
     Dates: start: 20010101, end: 20040322
  2. METHOTREXATE [Suspect]
     Indication: RHEUMATOID ARTHRITIS
     Dosage: 10 MG 1X PER 1 WK, ORAL
     Route: 048
     Dates: start: 20040405
  3. ENBREL [Suspect]
     Indication: RHEUMATOID ARTHRITIS
     Dosage: 25 MG 2X PER 1 WK, SC
     Route: 058
     Dates: start: 20021101, end: 20040322
  4. ENBREL [Suspect]
     Indication: RHEUMATOID ARTHRITIS
     Dosage: 25 MG 2X PER 1 WK, SC
     Route: 058
     Dates: start: 20040405
  5. FOLIC ACID) FOLIC ACID0 [Concomitant]
  6. IBUPROFEN [Concomitant]
  7. ELAVIL [Concomitant]
  8. LASIX (FUROSEMIDE0 [Concomitant]
  9. NORVASC [Concomitant]
  10. NADOLOL [Concomitant]
  11. DARVOCET-N (DETROPROPOXYPHENE/PARACETAMOL) [Concomitant]

REACTIONS (5)
  - OEDEMA [None]
  - PAIN [None]
  - PYREXIA [None]
  - RASH [None]
  - SUBCUTANEOUS ABSCESS [None]
